FAERS Safety Report 8531529-2 (Version None)
Quarter: 2012Q2

REPORT INFORMATION
  Report Type: 
  Country: None (occurrence: None)
  Receive Date: 20120412
  Receipt Date: 20110902
  Transmission Date: 20120825
  Serious: Yes (Death, Hospitalization)
  Sender: FDA-Public Use
  Company Number: 122871

PATIENT
  Age: 43 Year
  Sex: Male

DRUGS (2)
  1. ADRIAMYCIN PFS [Suspect]
     Indication: MULTIPLE MYELOMA
     Dates: start: 20100601
  2. ADRIAMYCIN PFS [Suspect]
     Indication: MULTIPLE MYELOMA
     Dates: start: 20100925

REACTIONS (3)
  - HAEMORRHAGE [None]
  - DEATH [None]
  - THROMBOCYTOPENIA [None]
